FAERS Safety Report 13108070 (Version 3)
Quarter: 2018Q1

REPORT INFORMATION
  Report Type: Spontaneous
  Country: US (occurrence: US)
  Receive Date: 20170112
  Receipt Date: 20180329
  Transmission Date: 20180508
  Serious: No
  Sender: FDA-Public Use
  Company Number: US-PFIZER INC-2016521745

PATIENT
  Age: 10 Year
  Sex: Male
  Weight: 39 kg

DRUGS (5)
  1. GENOTROPIN [Suspect]
     Active Substance: SOMATROPIN
     Dosage: UNK, 1X/DAY (2.2)
  2. GENOTROPIN [Suspect]
     Active Substance: SOMATROPIN
     Dosage: 2.4 MG, ALTERNATE DAY
  3. GENOTROPIN [Suspect]
     Active Substance: SOMATROPIN
     Dosage: UNK
     Dates: start: 20161212, end: 20170106
  4. GENOTROPIN [Suspect]
     Active Substance: SOMATROPIN
     Indication: GROWTH HORMONE DEFICIENCY
     Dosage: 1.9 MG, DAILY
     Route: 058
     Dates: start: 2014, end: 2016
  5. GENOTROPIN [Suspect]
     Active Substance: SOMATROPIN
     Dosage: 2.5 MG, ALTERNATE DAY

REACTIONS (3)
  - Headache [Recovering/Resolving]
  - Drug dose omission [Unknown]
  - Drug prescribing error [Unknown]

NARRATIVE: CASE EVENT DATE: 20161130
